FAERS Safety Report 8773970 (Version 1)
Quarter: 2012Q4

REPORT INFORMATION
  Report Type: 
  Country: US (occurrence: US)
  Receive Date: 20120907
  Receipt Date: 20120907
  Transmission Date: 20130627
  Serious: No
  Sender: FDA-Public Use
  Company Number: US-PFIZER INC-2012218793

PATIENT
  Age: 51 Year
  Sex: Male
  Weight: 81.63 kg

DRUGS (5)
  1. PROTONIX [Suspect]
     Indication: GASTROOESOPHAGEAL REFLUX DISEASE
     Dosage: 40 mg, daily
  2. NORVASC [Suspect]
     Dosage: UNK
  3. BENADRYL [Suspect]
     Indication: ARTHROPOD BITE
     Dosage: UNK
     Dates: start: 20120902
  4. MAXZIDE [Concomitant]
     Indication: HYPERTENSION
     Dosage: 25 mg, daily
  5. SIMVASTATIN [Concomitant]
     Indication: BLOOD CHOLESTEROL ABNORMAL
     Dosage: 40 mg, daily

REACTIONS (1)
  - Vomiting [Unknown]
